FAERS Safety Report 12605492 (Version 2)
Quarter: 2016Q3

REPORT INFORMATION
  Report Type: Report from Study
  Country: IT (occurrence: IT)
  Receive Date: 20160729
  Receipt Date: 20160824
  Transmission Date: 20161109
  Serious: Yes (Other)
  Sender: FDA-Public Use
  Company Number: IT-TEVA-679572ACC

PATIENT

DRUGS (4)
  1. INDOMETACIN [Suspect]
     Active Substance: INDOMETHACIN
  2. NAPROXEN. [Suspect]
     Active Substance: NAPROXEN
     Route: 065
  3. PIROXICAM. [Suspect]
     Active Substance: PIROXICAM
     Route: 065
  4. IBUPROFEN. [Suspect]
     Active Substance: IBUPROFEN
     Route: 065

REACTIONS (1)
  - Gastrointestinal toxicity [Unknown]
